FAERS Safety Report 4998887-7 (Version None)
Quarter: 2006Q2

REPORT INFORMATION
  Report Type: 
  Country: None (occurrence: None)
  Receive Date: 20060509
  Receipt Date: 20060502
  Transmission Date: 20061013
  Serious: Yes (Death, Other)
  Sender: FDA-Public Use
  Company Number: 232672K06USA

PATIENT
  Age: 72 Year
  Sex: Male

DRUGS (3)
  1. REBIF [Suspect]
     Indication: MULTIPLE SCLEROSIS
     Dosage: 44 MCG, 3 IN 1 WEEKS, SUBCUTANEOUS
     Route: 058
     Dates: start: 20040301, end: 20060110
  2. LIPITOR (ATORVASTATIN /01326101/) [Concomitant]
  3. HYDROCHLOROTHIAZIDE [Concomitant]

REACTIONS (4)
  - CAROTID ARTERY OCCLUSION [None]
  - COMA [None]
  - CONVULSION [None]
  - HAEMORRHAGE INTRACRANIAL [None]
